FAERS Safety Report 8105558-7 (Version None)
Quarter: 2012Q1

REPORT INFORMATION
  Report Type: 
  Country: None (occurrence: None)
  Receive Date: 20120201
  Receipt Date: 20120119
  Transmission Date: 20120608
  Serious: Yes (Other)
  Sender: FDA-Public Use
  Company Number: US-ROCHE-1005021

PATIENT
  Age: 72 Year
  Sex: Female

DRUGS (1)
  1. BONIVA [Suspect]
     Indication: PRODUCT USED FOR UNKNOWN INDICATION
     Route: 065
     Dates: start: 20060101, end: 20100629

REACTIONS (6)
  - BONE LOSS [None]
  - DYSPEPSIA [None]
  - JAW DISORDER [None]
  - OSTEOMYELITIS [None]
  - MEDICAL DEVICE REMOVAL [None]
  - INFECTION [None]
